FAERS Safety Report 24530111 (Version 1)
Quarter: 2024Q4

REPORT INFORMATION
  Report Type: Spontaneous
  Country: US (occurrence: None)
  Receive Date: 20241019
  Receipt Date: 20241019
  Transmission Date: 20250115
  Serious: Yes (Other)
  Sender: Public
  Company Number: None

PATIENT
  Age: 63 Year
  Sex: Female
  Weight: 79.2 kg

DRUGS (9)
  1. TRIAMTERENE-HYDROCHLOROTHIAZIDE [Suspect]
     Active Substance: TRIAMTERENE-HYDROCHLOROTHIAZIDE
     Dates: start: 20240919, end: 20241007
  2. CoQ10 [Concomitant]
  3. TRAMADOL [Concomitant]
     Active Substance: TRAMADOL
  4. VALIUM [Concomitant]
  5. CALCIUM [Suspect]
     Active Substance: CALCIUM
  6. Over-the-counter multivitamins, [Concomitant]
  7. CALCIUM [Concomitant]
     Active Substance: CALCIUM
  8. TYLENOL [Concomitant]
     Active Substance: ACETAMINOPHEN
  9. Motrin [Concomitant]

REACTIONS (7)
  - Nonspecific reaction [None]
  - Arthralgia [None]
  - Myalgia [None]
  - Movement disorder [None]
  - Feeling abnormal [None]
  - Muscle spasms [None]
  - Back pain [None]

NARRATIVE: CASE EVENT DATE: 20241007
